FAERS Safety Report 9280240 (Version 1)
Quarter: 2013Q2

REPORT INFORMATION
  Report Type: Spontaneous
  Country: US (occurrence: None)
  Receive Date: 20130507
  Receipt Date: 20130507
  Transmission Date: 20140414
  Serious: Yes (Other)
  Sender: FDA-Public Use
  Company Number: None

PATIENT
  Age: 23 Year
  Sex: Male
  Weight: 72.58 kg

DRUGS (1)
  1. PROPECIA [Suspect]
     Indication: ANDROGENETIC ALOPECIA
     Route: 048
     Dates: start: 20130309, end: 20130310

REACTIONS (18)
  - Insomnia [None]
  - Testicular pain [None]
  - Peyronie^s disease [None]
  - Semen viscosity abnormal [None]
  - Loss of libido [None]
  - Testicular atrophy [None]
  - Depression [None]
  - Anxiety [None]
  - Blunted affect [None]
  - Sexual dysfunction [None]
  - Constipation [None]
  - Hypoaesthesia [None]
  - Hypoaesthesia [None]
  - Myalgia [None]
  - Aphasia [None]
  - Motion sickness [None]
  - Dry skin [None]
  - Dry eye [None]
